FAERS Safety Report 6578722-6 (Version None)
Quarter: 2010Q1

REPORT INFORMATION
  Report Type: 
  Country: None (occurrence: None)
  Receive Date: 20100202
  Receipt Date: 20100118
  Transmission Date: 20100710
  Serious: Yes (Death)
  Sender: FDA-Public Use
  Company Number: 2010S1000096

PATIENT
  Age: 51 Year
  Sex: Female

DRUGS (11)
  1. ZIPSOR [Suspect]
     Dosage: PO
     Route: 048
     Dates: end: 20080101
  2. BETA BLOCKER [Suspect]
     Dosage: PO
     Route: 048
     Dates: end: 20080101
  3. BUPROPION HCL [Suspect]
     Dosage: PO
     Route: 048
     Dates: end: 20080101
  4. ALPRAZOLAM [Suspect]
     Dosage: PO
     Route: 048
     Dates: end: 20080101
  5. FLUOXETINE [Suspect]
     Dosage: PO
     Route: 048
     Dates: end: 20080101
  6. ENALAPRIL MALEATE [Suspect]
     Dosage: PO
     Route: 048
     Dates: end: 20080101
  7. ZOLPIDEM [Suspect]
     Dosage: PO
     Route: 048
     Dates: end: 20080101
  8. CYCLOBENZAPRINE [Suspect]
     Dosage: PO
     Route: 048
     Dates: end: 20080101
  9. GLIBENCLAMIDE [Suspect]
     Dosage: PO
     Route: 048
     Dates: end: 20080101
  10. LISINOPRIL [Suspect]
     Dosage: PO
     Route: 048
     Dates: end: 20080101
  11. LOVASTATIN [Suspect]
     Dosage: PO
     Route: 048
     Dates: end: 20080101

REACTIONS (1)
  - COMPLETED SUICIDE [None]
